FAERS Safety Report 7572249-0 (Version None)
Quarter: 2011Q2

REPORT INFORMATION
  Report Type: 
  Country: None (occurrence: None)
  Receive Date: 20110624
  Receipt Date: 20110613
  Transmission Date: 20111010
  Serious: Yes (Other)
  Sender: FDA-Public Use
  Company Number: PHHY2010JP86569

PATIENT
  Sex: Male

DRUGS (7)
  1. TASIGNA [Suspect]
     Dosage: 800 MG, DAILY
     Route: 048
     Dates: start: 20100616, end: 20100720
  2. ALLEGRA [Concomitant]
     Indication: PROPHYLAXIS
     Dosage: 120 MG, UNK
     Route: 048
     Dates: start: 20100616
  3. LANSOPRAZOLE [Concomitant]
     Indication: PROPHYLAXIS
     Dosage: 1 DF, UNK
     Route: 048
     Dates: start: 20100616, end: 20100803
  4. ALLEGRA [Concomitant]
     Dosage: 120 MG, UNK
     Route: 048
  5. TASIGNA [Suspect]
     Indication: CHRONIC MYELOID LEUKAEMIA
     Dosage: 800 MG, DAILY
     Route: 048
     Dates: start: 20100325, end: 20100330
  6. AMARYL [Concomitant]
     Indication: DIABETES MELLITUS
     Dosage: 1 MG, UNK
     Route: 048
     Dates: start: 20100707
  7. TASIGNA [Suspect]
     Dosage: 400 MG, DAILY
     Route: 048
     Dates: start: 20100818

REACTIONS (5)
  - PLATELET COUNT DECREASED [None]
  - ERYTHEMA [None]
  - CONSTIPATION [None]
  - RASH [None]
  - LIPASE INCREASED [None]
